FAERS Safety Report 21633948 (Version 1)
Quarter: 2022Q4

REPORT INFORMATION
  Report Type: Spontaneous
  Country: US (occurrence: US)
  Receive Date: 20221123
  Receipt Date: 20221123
  Transmission Date: 20230113
  Serious: Yes (Other)
  Sender: FDA-Public Use
  Company Number: US-BAXTER-2022BAX025003

PATIENT
  Age: 31 Year
  Sex: Female

DRUGS (4)
  1. LACTATED RINGERS SOLUTION [Suspect]
     Active Substance: CALCIUM CHLORIDE\POTASSIUM CHLORIDE\SODIUM CHLORIDE\SODIUM LACTATE
     Indication: Hyperemesis gravidarum
     Dosage: UNK
     Route: 042
     Dates: start: 20221117, end: 20221117
  2. LACTATED RINGERS SOLUTION [Suspect]
     Active Substance: CALCIUM CHLORIDE\POTASSIUM CHLORIDE\SODIUM CHLORIDE\SODIUM LACTATE
     Indication: Fluid replacement
  3. VITAMINS [Suspect]
     Active Substance: VITAMINS
     Indication: Hyperemesis gravidarum
     Dosage: INFUSION STARTED SLOW AT 200ML PER HOUR AT AN UNSPECIFIED DOSE AND FREQUENCY
     Route: 042
     Dates: start: 20221117, end: 20221117
  4. VITAMINS [Suspect]
     Active Substance: VITAMINS
     Indication: Fluid replacement

REACTIONS (4)
  - Flushing [Recovering/Resolving]
  - Erythema [Recovering/Resolving]
  - Chest discomfort [Recovering/Resolving]
  - Exposure during pregnancy [Unknown]

NARRATIVE: CASE EVENT DATE: 20221117
